FAERS Safety Report 6223328-1 (Version None)
Quarter: 2009Q2

REPORT INFORMATION
  Report Type: 
  Country: None (occurrence: None)
  Receive Date: 20090611
  Receipt Date: 20090605
  Transmission Date: 20091009
  Serious: Yes (Death, Other)
  Sender: FDA-Public Use
  Company Number: NL-ELI_LILLY_AND_COMPANY-NL200904001295

PATIENT
  Sex: Female

DRUGS (13)
  1. ALIMTA [Suspect]
     Indication: NON-SMALL CELL LUNG CANCER METASTATIC
     Dosage: 800 MG, UNKNOWN
     Route: 065
     Dates: start: 20090209
  2. CARBOPLATIN [Concomitant]
     Indication: NON-SMALL CELL LUNG CANCER METASTATIC
     Dosage: UNK, UNKNOWN
     Route: 065
  3. IRBESARTAN [Concomitant]
     Dosage: 150 X 1, UNKNOWN
     Route: 065
  4. DURAGESIC-100 [Concomitant]
     Dosage: UNK, UNKNOWN
     Route: 065
  5. DEXAMETHASONE [Concomitant]
     Dosage: 4 MG, DAILY (1/D)
     Route: 065
  6. FRAXIPARIN [Concomitant]
     Dosage: 0.3 CC (D/F), UNKNOWN
  7. GABAPENTIN [Concomitant]
     Dosage: 400 X 3 D/F, UNKNOWN
     Route: 065
  8. PRIMPERAN /SCH/ [Concomitant]
     Dosage: UNK, AS NEEDED
     Route: 065
  9. MOTILIUM [Concomitant]
     Dosage: UNKM(60 X 2), UNKNOWN
     Route: 065
  10. OMEPRAZOL [Concomitant]
     Dosage: 20 MG X 1, UNKNOWN
     Route: 065
  11. OXYNORM [Concomitant]
     Dosage: 3 X 10 UNKNOWN
     Route: 065
  12. FOLIC ACID [Concomitant]
     Dosage: 1 X 0.5MG
  13. VITAMIN B-12 [Concomitant]
     Dosage: UNK, UNKNOWN
     Route: 065

REACTIONS (3)
  - ILEAL PERFORATION [None]
  - INTESTINAL ISCHAEMIA [None]
  - SEPSIS [None]
